FAERS Safety Report 12844253 (Version 1)
Quarter: 2016Q4

REPORT INFORMATION
  Report Type: Spontaneous
  Country: US (occurrence: US)
  Receive Date: 20161013
  Receipt Date: 20161013
  Transmission Date: 20170207
  Serious: No
  Sender: FDA-Public Use
  Company Number: US-ROCHE-1752744

PATIENT
  Age: 51 Year
  Sex: Male

DRUGS (2)
  1. COTELLIC [Suspect]
     Active Substance: COBIMETINIB
     Indication: METASTASIS
     Dosage: QD1-21, 7 OFF
     Route: 048
     Dates: start: 20160420
  2. ZELBORAF [Suspect]
     Active Substance: VEMURAFENIB
     Indication: MELANOMA RECURRENT
     Route: 048
     Dates: start: 20160420

REACTIONS (1)
  - Sunburn [Recovering/Resolving]

NARRATIVE: CASE EVENT DATE: 201605
